FAERS Safety Report 9200704 (Version 1)
Quarter: 2013Q2

REPORT INFORMATION
  Report Type: Spontaneous
  Country: US (occurrence: US)
  Receive Date: 20130401
  Receipt Date: 20130401
  Transmission Date: 20140414
  Serious: Yes (Hospitalization)
  Sender: FDA-Public Use
  Company Number: US-AMGEN-USASP2013021155

PATIENT
  Age: 51 Year
  Sex: Female

DRUGS (2)
  1. ENBREL [Suspect]
     Indication: RHEUMATOID ARTHRITIS
     Dosage: 50 MG, QWK
     Dates: start: 20101123
  2. METHOTREXATE [Concomitant]
     Dosage: 10 UNK, UNK
     Dates: start: 2009

REACTIONS (4)
  - Heart valve replacement [Recovered/Resolved]
  - Coma [Recovered/Resolved]
  - Septic shock [Recovered/Resolved]
  - Injection site pain [Not Recovered/Not Resolved]
